FAERS Safety Report 6616536-9 (Version None)
Quarter: 2010Q1

REPORT INFORMATION
  Report Type: 
  Country: None (occurrence: None)
  Receive Date: 20100305
  Receipt Date: 20100222
  Transmission Date: 20100710
  Serious: Yes (Hospitalization, Other)
  Sender: FDA-Public Use
  Company Number: AU-PFIZER INC-2010023559

PATIENT
  Age: 65 Year
  Sex: Female

DRUGS (4)
  1. SUTENT [Suspect]
     Dosage: 37.5 MG, 1X/DAY
     Route: 048
     Dates: start: 20090921
  2. AMG386 [Suspect]
     Indication: METASTATIC RENAL CELL CARCINOMA
     Dosage: 606 MG, WEEKLY
     Route: 042
     Dates: start: 20090921
  3. SERTRALINE HYDROCHLORIDE [Concomitant]
     Dosage: 50 MG, 1X/DAY
     Route: 048
     Dates: start: 20060101
  4. METOCLOPRAMIDE [Concomitant]
     Dosage: 10 MG, AS NEEDED
     Route: 048
     Dates: start: 20091204

REACTIONS (2)
  - CHEST PAIN [None]
  - REFLUX OESOPHAGITIS [None]
